FAERS Safety Report 15466886 (Version 1)
Quarter: 2018Q4

REPORT INFORMATION
  Report Type: Spontaneous
  Country: US (occurrence: US)
  Receive Date: 20181005
  Receipt Date: 20181005
  Transmission Date: 20190204
  Serious: Yes (Life-Threatening, Hospitalization, Other)
  Sender: FDA-Public Use
  Company Number: US-AUROBINDO-AUR-APL-2018-047721

PATIENT
  Age: 47 Year
  Sex: Male

DRUGS (2)
  1. AMLODIPINE [Suspect]
     Active Substance: AMLODIPINE BESYLATE
     Indication: SUICIDE ATTEMPT
     Dosage: APROXIMATELY ; IN TOTAL
     Route: 065
  2. LISINOPRIL. [Suspect]
     Active Substance: LISINOPRIL
     Indication: SUICIDE ATTEMPT
     Dosage: APPROXIMATELY ; IN TOTAL
     Route: 065

REACTIONS (5)
  - Hypoxia [Recovering/Resolving]
  - Lactic acidosis [Unknown]
  - Pulmonary oedema [Recovering/Resolving]
  - Hypotension [Unknown]
  - Intentional overdose [Unknown]
